FAERS Safety Report 7463642-5 (Version None)
Quarter: 2011Q2

REPORT INFORMATION
  Report Type: 
  Country: None (occurrence: None)
  Receive Date: 20110506
  Receipt Date: 20110427
  Transmission Date: 20111010
  Serious: Yes (Hospitalization)
  Sender: FDA-Public Use
  Company Number: US-US-EMD SERONO, INC.-7002788

PATIENT
  Sex: Male

DRUGS (6)
  1. TIZANIDINE [Concomitant]
     Indication: MUSCLE SPASTICITY
  2. LYRICA [Concomitant]
     Indication: PARAESTHESIA
  3. ALBUTEROL [Concomitant]
     Indication: WHEEZING
     Route: 055
  4. AMBIEN [Concomitant]
     Indication: INSOMNIA
  5. REBIF [Suspect]
     Indication: MULTIPLE SCLEROSIS
     Route: 058
     Dates: start: 20090227
  6. PRISTIQ [Concomitant]
     Indication: DEPRESSION

REACTIONS (6)
  - PNEUMONIA [None]
  - CONDITION AGGRAVATED [None]
  - DYSPHAGIA [None]
  - MUSCULOSKELETAL STIFFNESS [None]
  - SPEECH DISORDER [None]
  - MUSCLE SPASMS [None]
